FAERS Safety Report 8204348-4 (Version None)
Quarter: 2012Q1

REPORT INFORMATION
  Report Type: 
  Country: None (occurrence: None)
  Receive Date: 20120227
  Receipt Date: 20120106
  Transmission Date: 20120608
  Serious: No
  Sender: FDA-Public Use
  Company Number: 342653

PATIENT
  Age: 73 Year
  Sex: Female

DRUGS (4)
  1. ATENOLOL (ATENOLOL HYDROCHLORIDE) [Concomitant]
  2. LISINOPRIL [Concomitant]
  3. VICTOZA [Suspect]
     Indication: TYPE 2 DIABETES MELLITUS
     Dosage: SUBCUTANEOUS
     Route: 058
  4. CLONIDINE [Concomitant]

REACTIONS (4)
  - BLOOD PRESSURE INCREASED [None]
  - HEART RATE INCREASED [None]
  - DECREASED APPETITE [None]
  - BLOOD GLUCOSE DECREASED [None]
